FAERS Safety Report 5062229-1 (Version None)
Quarter: 2006Q3

REPORT INFORMATION
  Report Type: 
  Country: None (occurrence: None)
  Receive Date: 20060726
  Receipt Date: 20060630
  Transmission Date: 20061208
  Serious: Yes (Hospitalization)
  Sender: FDA-Public Use
  Company Number: IE-AVENTIS-200616904GDDC

PATIENT
  Age: 77 Year
  Sex: Male
  Weight: 86.06 kg

DRUGS (1)
  1. LANTUS [Suspect]
     Route: 058
     Dates: start: 20060424

REACTIONS (3)
  - ANIMAL SCRATCH [None]
  - CELLULITIS [None]
  - INFECTION [None]
